FAERS Safety Report 17722249 (Version 3)
Quarter: 2020Q2

REPORT INFORMATION
  Report Type: Spontaneous
  Country: PT (occurrence: PT)
  Receive Date: 20200429
  Receipt Date: 20200626
  Transmission Date: 20200714
  Serious: Yes (Life-Threatening, Hospitalization, Disabling, Other)
  Sender: FDA-Public Use
  Company Number: PT-IPCA LABORATORIES LIMITED-IPC-2020-PT-001281

PATIENT

DRUGS (2)
  1. METFORMIN [Suspect]
     Active Substance: METFORMIN HYDROCHLORIDE
     Indication: TYPE 2 DIABETES MELLITUS
     Dosage: 500 MILLIGRAM, BID
     Route: 048
  2. METFORMIN [Suspect]
     Active Substance: METFORMIN HYDROCHLORIDE
     Indication: CEREBROVASCULAR DISORDER

REACTIONS (11)
  - Fatigue [Recovering/Resolving]
  - Coma acidotic [Recovering/Resolving]
  - Restlessness [Recovering/Resolving]
  - Acute kidney injury [Recovering/Resolving]
  - Seizure [Recovering/Resolving]
  - Blood lactic acid increased [Recovering/Resolving]
  - Lactic acidosis [Recovering/Resolving]
  - Blood bicarbonate decreased [Recovering/Resolving]
  - Hyperglycaemia [Recovering/Resolving]
  - Altered state of consciousness [Recovering/Resolving]
  - Metabolic acidosis [Recovering/Resolving]
